FAERS Safety Report 5786538-3 (Version None)
Quarter: 2008Q2

REPORT INFORMATION
  Report Type: 
  Country: None (occurrence: None)
  Receive Date: 20080624
  Receipt Date: 20080530
  Transmission Date: 20081010
  Serious: No
  Sender: FDA-Public Use
  Company Number: US-BOEHRINGER INGELHEIM GMBH, GERMANY-2008-BP-06666PF

PATIENT
  Age: 83 Year
  Sex: Male

DRUGS (16)
  1. SPIRIVA [Suspect]
     Indication: CHRONIC OBSTRUCTIVE PULMONARY DISEASE
     Route: 055
     Dates: start: 20070829, end: 20080422
  2. SPIRIVA [Suspect]
     Indication: WHEEZING
  3. SPIRIVA [Suspect]
     Indication: DYSPNOEA
  4. PRILOSEC [Concomitant]
  5. TRIAMTERENE AND HYDROCHLOROTHIAZIDE [Concomitant]
  6. METFORMIN HCL [Concomitant]
  7. SYNTHROID [Concomitant]
  8. ENTERIC ASPIRIN [Concomitant]
  9. VITAMIN B-12 [Concomitant]
  10. PROGEAU [Concomitant]
  11. LOVASTATIN [Concomitant]
  12. FLOMAX [Concomitant]
  13. ADVAIR DISKUS 100/50 [Concomitant]
  14. ADVAIR DISKUS 100/50 [Concomitant]
  15. IBUROFEN [Concomitant]
  16. GLUCOSAMINE/CHONDROITIN [Concomitant]

REACTIONS (1)
  - DYSPNOEA [None]
